FAERS Safety Report 5322057-6 (Version None)
Quarter: 2007Q2

REPORT INFORMATION
  Report Type: 
  Country: None (occurrence: None)
  Receive Date: 20070511
  Receipt Date: 20070504
  Transmission Date: 20071010
  Serious: Yes (Hospitalization)
  Sender: FDA-Public Use
  Company Number: CH-JNJFOC-20070501238

PATIENT
  Age: 85 Year
  Sex: Female

DRUGS (5)
  1. RISPERDAL [Suspect]
     Indication: DRUG USE FOR UNKNOWN INDICATION
     Route: 048
  2. SEROQUEL [Suspect]
     Indication: DRUG USE FOR UNKNOWN INDICATION
     Route: 048
  3. CIPRALEX [Suspect]
     Indication: DRUG USE FOR UNKNOWN INDICATION
     Route: 048
  4. TRITTICO [Suspect]
     Indication: DRUG USE FOR UNKNOWN INDICATION
     Route: 048
  5. STILNOX [Concomitant]
     Route: 048

REACTIONS (3)
  - DEPRESSED LEVEL OF CONSCIOUSNESS [None]
  - DRUG PRESCRIBING ERROR [None]
  - EXTRAPYRAMIDAL DISORDER [None]
